FAERS Safety Report 9316459 (Version 4)
Quarter: 2013Q2

REPORT INFORMATION
  Report Type: Spontaneous
  Country: US (occurrence: US)
  Receive Date: 20130530
  Receipt Date: 20130620
  Transmission Date: 20140414
  Serious: Yes (Other)
  Sender: FDA-Public Use
  Company Number: US-JNJFOC-20130514518

PATIENT
  Age: 40 Year
  Sex: Female
  Weight: 179.17 kg

DRUGS (1)
  1. XARELTO [Suspect]
     Indication: DEEP VEIN THROMBOSIS
     Route: 048
     Dates: start: 201302, end: 201303

REACTIONS (2)
  - Menorrhagia [Recovered/Resolved]
  - Haemoglobin decreased [Recovered/Resolved]
